FAERS Safety Report 22811544 (Version 6)
Quarter: 2024Q2

REPORT INFORMATION
  Report Type: Other
  Country: CA (occurrence: None)
  Receive Date: 20230810
  Receipt Date: 20240422
  Transmission Date: 20240715
  Serious: Yes (Other)
  Sender: FDA-Public Use
  Company Number: CA-ROCHE-3398722

PATIENT
  Age: 45 Year
  Sex: Female

DRUGS (1)
  1. OCREVUS [Suspect]
     Active Substance: OCRELIZUMAB
     Indication: Primary progressive multiple sclerosis
     Dosage: 300 MG AT DAY 0 AND 14, THEN 600 MG EVERY 6 MONTH
     Route: 042
     Dates: start: 20220616

REACTIONS (4)
  - Lower limb fracture [Unknown]
  - Fall [Unknown]
  - COVID-19 [Recovered/Resolved]
  - Movement disorder [Unknown]

NARRATIVE: CASE EVENT DATE: 20230508
